FAERS Safety Report 14631285 (Version 1)
Quarter: 2018Q1

REPORT INFORMATION
  Report Type: Spontaneous
  Country: US (occurrence: US)
  Receive Date: 20180313
  Receipt Date: 20180313
  Transmission Date: 20180509
  Serious: Yes (Hospitalization)
  Sender: FDA-Public Use
  Company Number: US-PFIZER INC-2018100238

PATIENT
  Age: 63 Year
  Sex: Female
  Weight: 98.43 kg

DRUGS (1)
  1. REVATIO [Suspect]
     Active Substance: SILDENAFIL CITRATE
     Indication: PULMONARY HYPERTENSION
     Dosage: TWO TABLETS THREE TIMES A DAY

REACTIONS (3)
  - Nephropathy [Not Recovered/Not Resolved]
  - Product use issue [Unknown]
  - Fluid overload [Not Recovered/Not Resolved]
